FAERS Safety Report 7311814-2 (Version None)
Quarter: 2011Q1

REPORT INFORMATION
  Report Type: 
  Country: None (occurrence: None)
  Receive Date: 20110224
  Receipt Date: 20110217
  Transmission Date: 20110831
  Serious: Yes (Hospitalization, Other)
  Sender: FDA-Public Use
  Company Number: JP-BRISTOL-MYERS SQUIBB COMPANY-15506447

PATIENT
  Age: 49 Year
  Sex: Male
  Weight: 56 kg

DRUGS (7)
  1. LENDORMIN [Concomitant]
     Dosage: TABS LENDORMIN D
     Dates: start: 20091110
  2. TEGRETOL [Concomitant]
     Dates: start: 20091110, end: 20100827
  3. DORAL [Concomitant]
     Dosage: TABS
     Dates: start: 20091225, end: 20100704
  4. ABILIFY [Suspect]
     Indication: SCHIZOPHRENIA
     Dosage: 24MG 12-15DEC2009 4DAYS; 30MG QD 16DEC2009-09DEC10(359D)
     Route: 048
     Dates: start: 20091212, end: 20101209
  5. HIRNAMIN [Concomitant]
     Dates: start: 20100331
  6. ROHYPNOL [Concomitant]
     Dosage: TABS
     Dates: start: 20091110
  7. CONTOMIN [Concomitant]
     Dosage: TABS
     Dates: start: 20091207, end: 20100711

REACTIONS (3)
  - CONSTIPATION [None]
  - PNEUMONIA [None]
  - PLEURISY [None]
